FAERS Safety Report 9209099 (Version 1)
Quarter: 2013Q2

REPORT INFORMATION
  Report Type: Spontaneous
  Country: MX (occurrence: MX)
  Receive Date: 20130404
  Receipt Date: 20130404
  Transmission Date: 20140414
  Serious: Yes (Death)
  Sender: FDA-Public Use
  Company Number: PHHY2013MX032391

PATIENT
  Age: 33 Year
  Sex: Female

DRUGS (3)
  1. TRILEPTAL [Suspect]
     Indication: EPILEPSY
     Dosage: 6 DF (6G/100ML), DAILY
     Route: 048
  2. SABRIL [Concomitant]
     Indication: EPILEPSY
     Dosage: 2 UKN, DAILY
  3. KEPPRA [Concomitant]
     Indication: EPILEPSY
     Dosage: 2 UKN, DAILY

REACTIONS (1)
  - Pneumonia [Fatal]
